FAERS Safety Report 5390412-4 (Version None)
Quarter: 2007Q3

REPORT INFORMATION
  Report Type: 
  Country: None (occurrence: None)
  Receive Date: 20070718
  Receipt Date: 20060705
  Transmission Date: 20080115
  Serious: No
  Sender: FDA-Public Use
  Company Number: US-KINGPHARMUSA00001-K200600875

PATIENT

DRUGS (4)
  1. LEVOXYL [Suspect]
     Indication: HYPOTHYROIDISM
     Dosage: 200 MCG, QD
     Route: 048
     Dates: start: 19960101, end: 20060101
  2. LEVOXYL [Suspect]
     Dosage: ALTERNATING 200 AND 175 MCG
     Route: 048
     Dates: start: 20060101, end: 20060601
  3. LEVOXYL [Suspect]
     Dosage: 175 MCG, QD
     Route: 048
     Dates: start: 20060601, end: 20060601
  4. ADVIL LIQUI-GELS [Concomitant]
     Dosage: UNK, UNK
     Route: 048

REACTIONS (2)
  - ASTHMA [None]
  - URTICARIA [None]
